FAERS Safety Report 7239413-1 (Version None)
Quarter: 2011Q1

REPORT INFORMATION
  Report Type: 
  Country: None (occurrence: None)
  Receive Date: 20110121
  Receipt Date: 20110114
  Transmission Date: 20110831
  Serious: Yes (Disabling)
  Sender: FDA-Public Use
  Company Number: JP-CEPHALON-2010006333

PATIENT
  Sex: Female

DRUGS (10)
  1. ZOLOFT [Concomitant]
     Dates: start: 20070419, end: 20070702
  2. TSUMURA-YOKUKANSAN [Concomitant]
     Indication: INSOMNIA
     Dates: start: 20070413, end: 20070626
  3. MYSLEE [Concomitant]
     Indication: INSOMNIA
     Dates: start: 20070203, end: 20070705
  4. SERENACE [Concomitant]
     Dates: start: 20070625, end: 20070702
  5. DEPAS [Concomitant]
     Indication: INSOMNIA
     Dates: start: 20051022, end: 20070702
  6. MODAFINIL [Suspect]
     Indication: NARCOLEPSY
     Route: 048
     Dates: start: 20070618, end: 20070626
  7. BENZALIN [Concomitant]
     Indication: INSOMNIA
     Dates: start: 20070226, end: 20090129
  8. RITALIN [Concomitant]
     Indication: SOMNOLENCE
     Dates: start: 20050929, end: 20070406
  9. AMOBAN [Concomitant]
     Indication: INSOMNIA
     Dates: start: 20070317, end: 20070719
  10. SEROQUEL [Concomitant]
     Dates: start: 20070317, end: 20070719

REACTIONS (1)
  - URINARY RETENTION [None]
